FAERS Safety Report 6652737-1 (Version None)
Quarter: 2010Q1

REPORT INFORMATION
  Report Type: 
  Country: None (occurrence: None)
  Receive Date: 20100326
  Receipt Date: 20100311
  Transmission Date: 20100710
  Serious: Yes (Other)
  Sender: FDA-Public Use
  Company Number: US-ELI_LILLY_AND_COMPANY-US201003004535

PATIENT
  Sex: Male

DRUGS (4)
  1. CIALIS [Suspect]
     Indication: BLOOD PRESSURE
     Dosage: 20 MG, UNK
     Dates: start: 20090101
  2. CIALIS [Suspect]
     Dosage: 10 MG, UNK
  3. CIALIS [Suspect]
     Dosage: 2.5 MG, UNK
     Dates: start: 20100201
  4. PRINIVIL [Concomitant]

REACTIONS (4)
  - CARDIAC PACEMAKER REPLACEMENT [None]
  - FLUSHING [None]
  - OFF LABEL USE [None]
  - VENTRICULAR EXTRASYSTOLES [None]
